FAERS Safety Report 10973875 (Version 1)
Quarter: 2015Q1

REPORT INFORMATION
  Report Type: Spontaneous
  Country: US (occurrence: None)
  Receive Date: 20150226
  Receipt Date: 20150226
  Transmission Date: 20150721
  Serious: No
  Sender: FDA-Public Use
  Company Number: TPA2009Q00283

PATIENT
  Age: 84 Year
  Sex: Female

DRUGS (20)
  1. VIOXX [Concomitant]
     Active Substance: ROFECOXIB
  2. AMITRIPTYLINE (AMITRIPTYLINE) [Concomitant]
     Active Substance: AMITRIPTYLINE
  3. SEROQUEL [Concomitant]
     Active Substance: QUETIAPINE FUMARATE
  4. ALBUTEROL NEBULIZER (SALBUTAMOL) [Concomitant]
  5. COLCHICINE (COLCHICINE) [Concomitant]
     Active Substance: COLCHICINE
  6. MACROBID [Concomitant]
     Active Substance: NITROFURANTOIN\NITROFURANTOIN MONOHYDRATE
  7. SYNTHROID [Concomitant]
     Active Substance: LEVOTHYROXINE SODIUM
  8. CORGARD [Concomitant]
     Active Substance: NADOLOL
  9. LASIX [Concomitant]
     Active Substance: FUROSEMIDE
  10. TIAZAC (DILTIAZEM HYDROCHLORIDE) [Concomitant]
  11. ULORIC [Suspect]
     Active Substance: FEBUXOSTAT
     Indication: GOUT
     Route: 048
     Dates: start: 2009, end: 2009
  12. LANOXIN [Concomitant]
     Active Substance: DIGOXIN
  13. VANCOMYCIN (VANCOMYCIN) [Concomitant]
     Active Substance: VANCOMYCIN
  14. CERTAIN SINUS RINSES (ALL OTHER THERAPEUTIC PRODUCTS) [Concomitant]
  15. MAG - 100 (MAGNESIUM CHLORIDE ANHYDROUS) [Concomitant]
  16. PLENDIL [Concomitant]
     Active Substance: FELODIPINE
  17. PREMARIN [Concomitant]
     Active Substance: ESTROGENS, CONJUGATED
  18. NITROGLYCERIN (GLYCERYL, TRINITRATE) [Concomitant]
  19. OXYCONTIN [Concomitant]
     Active Substance: OXYCODONE HYDROCHLORIDE
  20. BENICAR [Concomitant]
     Active Substance: OLMESARTAN MEDOXOMIL

REACTIONS (1)
  - Rash [None]

NARRATIVE: CASE EVENT DATE: 200903
